FAERS Safety Report 8600585-5 (Version None)
Quarter: 2012Q3

REPORT INFORMATION
  Report Type: 
  Country: None (occurrence: None)
  Receive Date: 20120817
  Receipt Date: 20120809
  Transmission Date: 20120928
  Serious: Yes (Hospitalization)
  Sender: FDA-Public Use
  Company Number: US-BAYER-2012-082708

PATIENT
  Age: 43 Year
  Sex: Female
  Weight: 73.469 kg

DRUGS (17)
  1. LIDOCAINE [Concomitant]
     Dosage: UNK
  2. YAZ [Suspect]
  3. FENTANYL [Concomitant]
     Route: 042
  4. IBUPROFEN [Concomitant]
     Route: 048
  5. PREDNISONE TAB [Concomitant]
     Dosage: UNK
     Route: 048
  6. MULTI-VITAMINS [Concomitant]
  7. MARCAINE [Concomitant]
     Dosage: UNK
  8. VITAMIN B COMPLEX CAP [Concomitant]
  9. ARMODAFINIL [Concomitant]
  10. NILSTAT [Concomitant]
     Dosage: 120 ML, QID
     Route: 048
  11. VERSED [Concomitant]
     Dosage: UNK
     Route: 042
  12. PLAVIX [Concomitant]
  13. HYDROCODONE BITARTRATE AND ACETAMINOPHEN [Concomitant]
     Dosage: 7.5/650 MG, QID PRN
     Route: 048
     Dates: start: 20080808, end: 20080901
  14. EXCEDRIN (MIGRAINE) [Concomitant]
  15. DEPO-MEDROL [Concomitant]
     Dosage: UNK
  16. NYSTATIN [Concomitant]
     Dosage: 4 X DAILY
     Route: 048
  17. GABAPENTIN [Concomitant]
     Dosage: 100 MG, TID
     Route: 048
     Dates: start: 20080912

REACTIONS (1)
  - ISCHAEMIC STROKE [None]
